FAERS Safety Report 8979970 (Version 1)
Quarter: 2012Q4

REPORT INFORMATION
  Report Type: 
  Country: US (occurrence: US)
  Receive Date: 20121221
  Receipt Date: 20121221
  Transmission Date: 20130627
  Serious: Yes (Other)
  Sender: FDA-Public Use
  Company Number: US-JNJFOC-20121207686

PATIENT
  Sex: Female

DRUGS (1)
  1. ORTHO-CYCLEN [Suspect]
     Indication: PRODUCT USED FOR UNKNOWN INDICATION
     Route: 048

REACTIONS (5)
  - Mood swings [Unknown]
  - Drug prescribing error [Unknown]
  - Diarrhoea [Unknown]
  - Menorrhagia [Unknown]
  - Drug dispensing error [Unknown]
